FAERS Safety Report 15196927 (Version 1)
Quarter: 2018Q3

REPORT INFORMATION
  Report Type: Spontaneous
  Country: US (occurrence: US)
  Receive Date: 20180626
  Receipt Date: 20180626
  Transmission Date: 20181010
  Serious: Yes (Other)
  Sender: FDA-Public Use
  Company Number: None

PATIENT
  Age: 27 Year
  Sex: Female
  Weight: 64.86 kg

DRUGS (2)
  1. IBUPROFEN. [Concomitant]
     Active Substance: IBUPROFEN
  2. SKYLA [Suspect]
     Active Substance: LEVONORGESTREL
     Dates: start: 20130715, end: 20180623

REACTIONS (3)
  - Muscle spasms [None]
  - Haemorrhage [None]
  - Coagulopathy [None]

NARRATIVE: CASE EVENT DATE: 20180626
